FAERS Safety Report 6721229-3 (Version None)
Quarter: 2010Q2

REPORT INFORMATION
  Report Type: 
  Country: None (occurrence: None)
  Receive Date: 20100512
  Receipt Date: 20100506
  Transmission Date: 20101027
  Serious: Yes (Other)
  Sender: FDA-Public Use
  Company Number: IT-BAYER-201024444GPV

PATIENT
  Age: 78 Year
  Sex: Male

DRUGS (11)
  1. ASPIRIN [Suspect]
     Indication: PROPHYLAXIS
     Route: 048
     Dates: start: 20090901, end: 20100416
  2. COUMADIN [Suspect]
     Indication: PROPHYLAXIS
     Route: 048
     Dates: start: 20090901, end: 20100416
  3. PLAVIX [Suspect]
     Indication: PROPHYLAXIS
     Route: 048
     Dates: start: 20090901, end: 20100416
  4. CORDARONE [Concomitant]
  5. TRIATEC [Concomitant]
     Route: 048
  6. CONGESCOR [Concomitant]
     Route: 048
  7. ALDACTONE [Concomitant]
     Route: 048
  8. NITRODERM [Concomitant]
     Route: 062
  9. LASIX [Concomitant]
  10. HUMULIN R [Concomitant]
     Route: 058
  11. HUMULIN I [Concomitant]

REACTIONS (2)
  - INTERNATIONAL NORMALISED RATIO INCREASED [None]
  - MOUTH HAEMORRHAGE [None]
